FAERS Safety Report 24437816 (Version 1)
Quarter: 2024Q4

REPORT INFORMATION
  Report Type: Spontaneous
  Country: US (occurrence: US)
  Receive Date: 20241015
  Receipt Date: 20241015
  Transmission Date: 20250115
  Serious: No
  Sender: LEXICON PHARMACEUTICALS
  Company Number: US-LEX-000480

PATIENT
  Age: 71 Year
  Sex: Male

DRUGS (8)
  1. INPEFA [Suspect]
     Active Substance: SOTAGLIFLOZIN
     Indication: Cardiomyopathy
     Route: 048
     Dates: start: 20240912, end: 20240916
  2. ENTRESTO [Concomitant]
     Active Substance: SACUBITRIL\VALSARTAN
  3. SPIRONOLACTONE [Concomitant]
     Active Substance: SPIRONOLACTONE
  4. ROSUVASTATIN [Concomitant]
     Active Substance: ROSUVASTATIN
  5. XARELTO [Concomitant]
     Active Substance: RIVAROXABAN
  6. LEVOTHYROXINE [Concomitant]
     Active Substance: LEVOTHYROXINE
  7. TRAZODONE [Concomitant]
     Active Substance: TRAZODONE HYDROCHLORIDE
  8. METOPROLOL SUCCINATE [Concomitant]
     Active Substance: METOPROLOL SUCCINATE

REACTIONS (3)
  - Rash [Unknown]
  - Pruritus [Unknown]
  - Drug titration error [Unknown]

NARRATIVE: CASE EVENT DATE: 20240912
